FAERS Safety Report 14475870 (Version 1)
Quarter: 2018Q1

REPORT INFORMATION
  Report Type: Spontaneous
  Country: AT (occurrence: AT)
  Receive Date: 20180201
  Receipt Date: 20180201
  Transmission Date: 20180509
  Serious: Yes (Other)
  Sender: FDA-Public Use
  Company Number: AT-MYLANLABS-2018M1005919

PATIENT
  Sex: Female

DRUGS (6)
  1. CEFTRIAXONE. [Suspect]
     Active Substance: CEFTRIAXONE
     Indication: PNEUMONIA
  2. FLUMAZENIL. [Suspect]
     Active Substance: FLUMAZENIL
     Indication: PRODUCT USED FOR UNKNOWN INDICATION
     Dosage: 25 MG, AM
     Route: 048
  3. CEFTRIAXONE. [Suspect]
     Active Substance: CEFTRIAXONE
     Indication: PYREXIA
     Dosage: 4 G, UNK
     Route: 065
  4. FLUMAZENIL. [Suspect]
     Active Substance: FLUMAZENIL
     Dosage: 25 MG, PM
     Route: 048
  5. FLUMAZENIL. [Suspect]
     Active Substance: FLUMAZENIL
     Dosage: 50 MG, UNK
     Route: 048
     Dates: start: 198703
  6. FLUMAZENIL. [Suspect]
     Active Substance: FLUMAZENIL
     Indication: HEPATIC ENCEPHALOPATHY
     Dosage: 1 MG, UNK
     Route: 042

REACTIONS (4)
  - Colitis [Unknown]
  - Pyrexia [Recovered/Resolved]
  - Anxiety [Recovered/Resolved]
  - Pneumonia [Unknown]
